FAERS Safety Report 6067413-6 (Version None)
Quarter: 2009Q1

REPORT INFORMATION
  Report Type: 
  Country: None (occurrence: None)
  Receive Date: 20090205
  Receipt Date: 20090129
  Transmission Date: 20090719
  Serious: Yes (Other)
  Sender: FDA-Public Use
  Company Number: CA-PFIZER INC-2009163998

PATIENT

DRUGS (3)
  1. CELEBREX [Suspect]
     Indication: PROCEDURAL PAIN
     Route: 063
  2. TYLENOL [Concomitant]
     Dosage: UNK
  3. DRUG, UNSPECIFIED [Concomitant]
     Dosage: UNK

REACTIONS (2)
  - DRUG EXPOSURE VIA BREAST MILK [None]
  - RESPIRATORY ARREST [None]
